FAERS Safety Report 10628629 (Version 1)
Quarter: 2014Q4

REPORT INFORMATION
  Report Type: Spontaneous
  Country: US (occurrence: US)
  Receive Date: 20141205
  Receipt Date: 20141205
  Transmission Date: 20150529
  Serious: No
  Sender: FDA-Public Use
  Company Number: US-BRISTOL-MYERS SQUIBB COMPANY-21399613

PATIENT
  Age: 64 Year
  Sex: Male

DRUGS (10)
  1. REYATAZ [Suspect]
     Active Substance: ATAZANAVIR SULFATE
     Indication: HIV INFECTION
     Dates: start: 2009
  2. FOSAMAX [Concomitant]
     Active Substance: ALENDRONATE SODIUM
  3. RITONAVIR. [Suspect]
     Active Substance: RITONAVIR
     Indication: HIV INFECTION
     Dates: start: 2009
  4. CALCIUM [Concomitant]
     Active Substance: CALCIUM
  5. VITAMIN D [Concomitant]
     Active Substance: CHOLECALCIFEROL
  6. MULTIVITAMIN [Concomitant]
     Active Substance: VITAMINS
  7. BABY ASPIRIN [Concomitant]
     Active Substance: ASPIRIN
  8. LIPITOR [Concomitant]
     Active Substance: ATORVASTATIN CALCIUM
  9. LISINOPRIL. [Concomitant]
     Active Substance: LISINOPRIL
  10. TESTOSTERONE. [Concomitant]
     Active Substance: TESTOSTERONE

REACTIONS (3)
  - Flank pain [Unknown]
  - Nephrolithiasis [Unknown]
  - Haematuria [Unknown]

NARRATIVE: CASE EVENT DATE: 20140820
